APPROVED DRUG PRODUCT: HALOPERIDOL DECANOATE
Active Ingredient: HALOPERIDOL DECANOATE
Strength: EQ 50MG BASE/ML
Dosage Form/Route: INJECTABLE;INJECTION
Application: A074811 | Product #001
Applicant: HIKMA PHARMACEUTICALS USA INC
Approved: Jan 30, 1998 | RLD: No | RS: No | Type: DISCN